FAERS Safety Report 24364806 (Version 3)
Quarter: 2025Q3

REPORT INFORMATION
  Report Type: Report from Study
  Country: US (occurrence: US)
  Receive Date: 20240926
  Receipt Date: 20250717
  Transmission Date: 20251021
  Serious: Yes (Other)
  Sender: ABBVIE
  Company Number: US-ABBVIE-5283565

PATIENT
  Age: 71 Year
  Sex: Female

DRUGS (2)
  1. HUMIRA [Suspect]
     Active Substance: ADALIMUMAB
     Indication: Rheumatoid arthritis
     Route: 058
     Dates: start: 20200801, end: 20230201
  2. HUMIRA [Suspect]
     Active Substance: ADALIMUMAB
     Route: 058
     Dates: start: 202305, end: 20250320

REACTIONS (12)
  - Colitis microscopic [Unknown]
  - Illness [Unknown]
  - Hyperthyroidism [Recovering/Resolving]
  - Night sweats [Unknown]
  - Fatigue [Unknown]
  - Gait disturbance [Unknown]
  - Anorectal polyp [Not Recovered/Not Resolved]
  - Fibromyalgia [Unknown]
  - Muscular weakness [Not Recovered/Not Resolved]
  - Arthralgia [Unknown]
  - Back pain [Recovering/Resolving]
  - Gastrointestinal infection [Unknown]

NARRATIVE: CASE EVENT DATE: 20220101
